FAERS Safety Report 4338685-0 (Version None)
Quarter: 2004Q2

REPORT INFORMATION
  Report Type: 
  Country: None (occurrence: None)
  Receive Date: 20040409
  Receipt Date: 20040322
  Transmission Date: 20050107
  Serious: Yes (Hospitalization)
  Sender: FDA-Public Use
  Company Number: 23494

PATIENT
  Age: 66 Year
  Sex: Female

DRUGS (2)
  1. ARISTOCR (FLECAINIDE ACETATE) [Suspect]
     Indication: ATRIAL FLUTTER
     Dosage: (1/2 TAB; TWICE DAILY)
     Dates: start: 20030601
  2. THYREX (LEVOTHYROXINE SODIUM) [Concomitant]

REACTIONS (2)
  - ECZEMA [None]
  - PSORIASIS [None]
